FAERS Safety Report 18725122 (Version 1)
Quarter: 2021Q1

REPORT INFORMATION
  Report Type: Spontaneous
  Country: US (occurrence: US)
  Receive Date: 20210111
  Receipt Date: 20210111
  Transmission Date: 20210419
  Serious: No
  Sender: FDA-Public Use
  Company Number: None

PATIENT
  Age: 67 Year
  Sex: Male

DRUGS (17)
  1. NASONEX 50MCG NASAL SPRAY [Concomitant]
     Dates: start: 20181121
  2. SPIRIVA [Concomitant]
     Active Substance: TIOTROPIUM BROMIDE MONOHYDRATE
     Dates: start: 20181121
  3. OXYCODONE 20MG IR TABS [Concomitant]
     Dates: start: 20181121
  4. ZOLPIDEM ER 12.5MG TABLETS [Concomitant]
     Active Substance: ZOLPIDEM TARTRATE
     Dates: start: 20181121
  5. FENTANYL TRANSDERMAL SYSTEM [Concomitant]
     Active Substance: FENTANYL
     Dates: start: 20191112
  6. VITAMIN D 1000 UNITS [Concomitant]
     Dates: start: 20190521
  7. VOTRIENT [Suspect]
     Active Substance: PAZOPANIB HYDROCHLORIDE
     Indication: RENAL CANCER
     Route: 048
     Dates: start: 20190912, end: 20210104
  8. METOPROLOL TART 100MG [Concomitant]
     Dates: start: 20181121
  9. PANTOPRAZOLE 40MG TABLETS [Concomitant]
     Active Substance: PANTOPRAZOLE
     Dates: start: 20181121
  10. PREVACID 15MG SOLU TAB [Concomitant]
     Dates: start: 20191112
  11. LORAZEPAM 1MG [Concomitant]
     Active Substance: LORAZEPAM
     Dates: start: 20181121
  12. METHOCARBAMOL 500MG [Concomitant]
     Dates: start: 20181121
  13. ZOFRAN 4MG TABLETS [Concomitant]
     Dates: start: 20181121
  14. BUDESONIDE 0.5/2ML VIALS [Concomitant]
     Dates: start: 20181121
  15. TERAZOSIN 1MG CAPSULES [Concomitant]
     Dates: start: 20181121
  16. PROMETHAZINE [Concomitant]
     Active Substance: PROMETHAZINE HYDROCHLORIDE
  17. LYRICA [Concomitant]
     Active Substance: PREGABALIN
     Dates: start: 20181121

REACTIONS (2)
  - Neoplasm progression [None]
  - Therapy cessation [None]

NARRATIVE: CASE EVENT DATE: 20210104
